FAERS Safety Report 23396358 (Version 1)
Quarter: 2024Q1

REPORT INFORMATION
  Report Type: Spontaneous
  Country: CN (occurrence: None)
  Receive Date: 20240112
  Receipt Date: 20240112
  Transmission Date: 20240409
  Serious: Yes (Other)
  Sender: FDA-Public Use
  Company Number: CN-ROCHE-3490049

PATIENT
  Age: 57 Year
  Sex: Female
  Weight: 62 kg

DRUGS (4)
  1. HERCEPTIN [Suspect]
     Active Substance: TRASTUZUMAB
     Indication: Breast cancer
     Route: 041
     Dates: start: 20231221, end: 20231221
  2. EPIRUBICIN HYDROCHLORIDE [Suspect]
     Active Substance: EPIRUBICIN HYDROCHLORIDE
     Indication: Breast cancer
     Route: 041
     Dates: start: 20231222, end: 20231223
  3. VINORELBINE TARTRATE [Suspect]
     Active Substance: VINORELBINE TARTRATE
     Indication: Breast cancer
     Route: 041
     Dates: start: 20231222, end: 20231223
  4. VINORELBINE TARTRATE [Suspect]
     Active Substance: VINORELBINE TARTRATE
     Route: 041
     Dates: start: 20231229, end: 20231229

REACTIONS (1)
  - Myelosuppression [Recovering/Resolving]

NARRATIVE: CASE EVENT DATE: 20231226
